FAERS Safety Report 4916830-3 (Version None)
Quarter: 2006Q1

REPORT INFORMATION
  Report Type: 
  Country: None (occurrence: None)
  Receive Date: 20060216
  Receipt Date: 20060216
  Transmission Date: 20060701
  Serious: Yes (Hospitalization)
  Sender: FDA-Public Use
  Company Number: None

PATIENT
  Sex: Male

DRUGS (9)
  1. ENOXAPARIN SODIUM [Suspect]
     Indication: ANTICOAGULANT THERAPY
     Dosage: 100 MG BID SUBDERMAL
     Route: 059
     Dates: start: 20051115, end: 20051121
  2. VALSARTAN [Concomitant]
  3. ISOSORBIDE MONONITRATE [Concomitant]
  4. FUROSEMIDE [Concomitant]
  5. OMEPRAZOLE [Concomitant]
  6. SIMVASTATIN [Concomitant]
  7. SOTALOL HCL [Concomitant]
  8. CLOPIDOGREL [Concomitant]
  9. WARFARIN SODIUM [Concomitant]

REACTIONS (2)
  - POST PROCEDURAL HAEMATOMA [None]
  - PROCEDURAL SITE REACTION [None]
